FAERS Safety Report 6367828-2 (Version None)
Quarter: 2009Q3

REPORT INFORMATION
  Report Type: 
  Country: None (occurrence: None)
  Receive Date: 20090921
  Receipt Date: 20090915
  Transmission Date: 20100115
  Serious: Yes (Death)
  Sender: FDA-Public Use
  Company Number: JP-GENENTECH-289772

PATIENT
  Sex: Male

DRUGS (7)
  1. RITUXAN [Suspect]
     Indication: B-CELL LYMPHOMA
     Dosage: 600 MG, UNK
     Route: 042
     Dates: start: 20090217
  2. CYCLOPHOSPHAMIDE [Concomitant]
     Indication: B-CELL LYMPHOMA
     Dosage: 1000 MG, Q3W
     Route: 042
     Dates: start: 20090217, end: 20090623
  3. DOXORUBICIN HCL [Concomitant]
     Indication: B-CELL LYMPHOMA
     Dosage: 80 MG, Q3W
     Route: 042
     Dates: start: 20090217, end: 20090623
  4. VINCRISTINE [Concomitant]
     Indication: B-CELL LYMPHOMA
     Dosage: 2 MG, Q3W
     Route: 042
     Dates: start: 20090217, end: 20090623
  5. SOLU-CORTEF [Concomitant]
     Indication: PREMEDICATION
     Dosage: 100 MG, UNK
     Route: 042
     Dates: start: 20090217, end: 20090623
  6. KYTRIL [Concomitant]
     Indication: PREMEDICATION
     Dosage: 3 MG, UNK
     Route: 042
     Dates: start: 20090217, end: 20090623
  7. BACTRAMIN [Concomitant]
     Indication: INFECTION PROPHYLAXIS
     Dosage: 2 TABLET, 2/WEEK
     Route: 048
     Dates: start: 20090217, end: 20090706

REACTIONS (1)
  - HEPATITIS B [None]
